FAERS Safety Report 10159123 (Version 3)
Quarter: 2015Q4

REPORT INFORMATION
  Report Type: Report from Study
  Country: US (occurrence: US)
  Receive Date: 20140508
  Receipt Date: 20151105
  Transmission Date: 20160304
  Serious: Yes (Death, Other)
  Sender: FDA-Public Use
  Company Number: US-ROCHE-1246254

PATIENT
  Age: 61 Year
  Sex: Female

DRUGS (4)
  1. HERCEPTIN [Suspect]
     Active Substance: TRASTUZUMAB
     Indication: BREAST CANCER FEMALE
  2. HERCEPTIN [Suspect]
     Active Substance: TRASTUZUMAB
     Indication: HER-2 POSITIVE BREAST CANCER
     Route: 065
  3. XELODA [Suspect]
     Active Substance: CAPECITABINE
     Indication: BREAST CANCER STAGE IV
     Route: 065
  4. PERJETA [Suspect]
     Active Substance: PERTUZUMAB
     Indication: BREAST CANCER STAGE IV
     Route: 065
     Dates: start: 2011

REACTIONS (3)
  - Spinal fracture [Unknown]
  - Breast cancer metastatic [Fatal]
  - Disease progression [Unknown]

NARRATIVE: CASE EVENT DATE: 201103
